FAERS Safety Report 25665328 (Version 1)
Quarter: 2025Q3

REPORT INFORMATION
  Report Type: Spontaneous
  Country: US (occurrence: None)
  Receive Date: 20250811
  Receipt Date: 20250811
  Transmission Date: 20251021
  Serious: Yes (Death)
  Sender: FDA-CTU
  Company Number: None

PATIENT
  Sex: Male

DRUGS (8)
  1. ABIRATERONE ACETATE [Suspect]
     Active Substance: ABIRATERONE ACETATE
     Indication: Prostate cancer
     Dosage: FREQUENCY : DAILY;?
     Route: 048
     Dates: start: 20250227
  2. AMLODIPINE TAB [Concomitant]
  3. ASPIRIN [Concomitant]
     Active Substance: ASPIRIN
  4. CARVEDILOL [Concomitant]
     Active Substance: CARVEDILOL
  5. CHLORTHALID TAB [Concomitant]
  6. CLONIDINE DIS 0.1/24HR [Concomitant]
  7. TELMISARTAN TAB [Concomitant]
  8. lv1TAMIN BS TAB [Concomitant]

REACTIONS (1)
  - Death [None]
